FAERS Safety Report 23451283 (Version 1)
Quarter: 2024Q1

REPORT INFORMATION
  Report Type: Spontaneous
  Country: US (occurrence: None)
  Receive Date: 20240126
  Receipt Date: 20240126
  Transmission Date: 20240410
  Serious: No
  Sender: FDA-Public Use
  Company Number: None

PATIENT
  Sex: Male

DRUGS (1)
  1. TEMOZOLOMIDE [Suspect]
     Active Substance: TEMOZOLOMIDE
     Indication: Metastases to lung
     Dosage: TAKE 4 CAPSULES BY MOUTH 1 TIME A DAY FOR 5 DAYS OF 28 DAY CYCLE.
     Route: 048
     Dates: start: 202310

REACTIONS (1)
  - Product use issue [None]
